FAERS Safety Report 14146576 (Version 1)
Quarter: 2017Q4

REPORT INFORMATION
  Report Type: Spontaneous
  Country: US (occurrence: US)
  Receive Date: 20171031
  Receipt Date: 20171031
  Transmission Date: 20180321
  Serious: No
  Sender: FDA-Public Use
  Company Number: US-ASTRAZENECA-2017SF06927

PATIENT
  Sex: Female

DRUGS (3)
  1. ENTRESTO [Concomitant]
     Active Substance: SACUBITRIL\VALSARTAN
  2. ASPIRIN. [Concomitant]
     Active Substance: ASPIRIN
     Route: 048
  3. BRILINTA [Suspect]
     Active Substance: TICAGRELOR
     Indication: STENT PLACEMENT
     Route: 048
     Dates: start: 201709

REACTIONS (1)
  - Pleural effusion [Unknown]
